FAERS Safety Report 6583731-7 (Version None)
Quarter: 2010Q1

REPORT INFORMATION
  Report Type: 
  Country: None (occurrence: None)
  Receive Date: 20100216
  Receipt Date: 20100204
  Transmission Date: 20100710
  Serious: Yes (Other)
  Sender: FDA-Public Use
  Company Number: JP-ROCHE-588908

PATIENT
  Sex: Male
  Weight: 64 kg

DRUGS (20)
  1. TOCILIZUMAB [Suspect]
     Indication: RHEUMATOID ARTHRITIS
     Dosage: FORM: INJECTION
     Route: 041
     Dates: start: 20080819, end: 20080819
  2. TOCILIZUMAB [Suspect]
     Dosage: FORM: INJECTION
     Route: 041
     Dates: start: 20080916, end: 20080916
  3. TOCILIZUMAB [Suspect]
     Dosage: FORM: INJECTION
     Route: 041
     Dates: start: 20081014, end: 20081014
  4. TOCILIZUMAB [Suspect]
     Dosage: FORM: INJECTION
     Route: 041
     Dates: start: 20081111, end: 20081111
  5. TOCILIZUMAB [Suspect]
     Dosage: FORM: INJECTION
     Route: 041
     Dates: start: 20081209, end: 20081209
  6. TOCILIZUMAB [Suspect]
     Dosage: FORM: INJECTION
     Route: 041
     Dates: start: 20090106, end: 20090106
  7. TOCILIZUMAB [Suspect]
     Dosage: FORM: INJECTION
     Route: 041
     Dates: start: 20090203
  8. RHEUMATREX [Concomitant]
     Route: 048
     Dates: start: 20080325, end: 20080819
  9. RHEUMATREX [Concomitant]
     Dosage: DOSE: INCREASED
     Route: 048
     Dates: start: 20080820, end: 20081013
  10. MEDROL [Concomitant]
     Route: 048
     Dates: start: 20080726, end: 20080813
  11. MEDROL [Concomitant]
     Route: 048
     Dates: start: 20080814, end: 20081031
  12. MEDROL [Concomitant]
     Route: 048
     Dates: start: 20080911
  13. MEDROL [Concomitant]
     Route: 048
     Dates: start: 20081101, end: 20081121
  14. MEDROL [Concomitant]
     Route: 048
     Dates: start: 20081122, end: 20081228
  15. MEDROL [Concomitant]
     Route: 048
     Dates: start: 20081229, end: 20090202
  16. MEDROL [Concomitant]
     Route: 048
     Dates: start: 20090203
  17. LOXONIN [Concomitant]
     Dosage: FORM: PERORAL AGENT
     Route: 048
     Dates: start: 20080325, end: 20080819
  18. CELCOX [Concomitant]
     Dosage: DRUG NAME REPORTED AS CELECOX
     Route: 048
     Dates: start: 20080820
  19. PROGRAF [Concomitant]
     Dosage: GENERIC RPTD AS: TACROLIMUS HYDRATE
     Route: 048
     Dates: start: 20081014, end: 20081031
  20. PROGRAF [Concomitant]
     Route: 048
     Dates: start: 20081101

REACTIONS (1)
  - C-REACTIVE PROTEIN INCREASED [None]
